FAERS Safety Report 15218057 (Version 5)
Quarter: 2022Q3

REPORT INFORMATION
  Report Type: Report from Study
  Country: DE (occurrence: DE)
  Receive Date: 20180730
  Receipt Date: 20220901
  Transmission Date: 20221027
  Serious: Yes (Hospitalization, Other)
  Sender: FDA-Public Use
  Company Number: DE-BRISTOL-MYERS SQUIBB COMPANY-BMS-2017-005126

PATIENT
  Age: 40 Year
  Sex: Female

DRUGS (4)
  1. DASATINIB [Suspect]
     Active Substance: DASATINIB
     Indication: Chronic myeloid leukaemia
     Dosage: 100 MG, QD
     Route: 065
     Dates: start: 20130301, end: 20160620
  2. HYDROXYUREA [Suspect]
     Active Substance: HYDROXYUREA
     Indication: Chronic myeloid leukaemia
     Dosage: 1000 MG, QD ON 7 DAYS PER WEEK
     Route: 065
     Dates: start: 20160727, end: 20171127
  3. NILOTINIB [Suspect]
     Active Substance: NILOTINIB
     Indication: Chronic myeloid leukaemia
     Dosage: 600 MG, QD ON 7 DAYS PER WEEK
     Route: 065
     Dates: start: 20160621, end: 20160726
  4. HYDROXYUREA [Suspect]
     Active Substance: HYDROXYUREA
     Indication: Chronic myeloid leukaemia
     Dosage: 1000 MG, QD ON 7 DAYS PER WEEK
     Route: 065
     Dates: start: 20160621

REACTIONS (17)
  - Endometrial hyperplasia [Recovered/Resolved]
  - Menopausal symptoms [Recovered/Resolved]
  - Drug ineffective [Unknown]
  - Malignant neoplasm progression [Unknown]
  - Drug resistance [Unknown]
  - Therapeutic response decreased [Unknown]
  - Headache [Unknown]
  - Flank pain [Recovering/Resolving]
  - Platelet count increased [Recovering/Resolving]
  - Fatigue [Recovered/Resolved]
  - Rash pruritic [Recovering/Resolving]
  - Constipation [Recovered/Resolved]
  - Heavy menstrual bleeding [Not Recovered/Not Resolved]
  - Splenomegaly [Recovered/Resolved]
  - Dyspnoea exertional [Recovered/Resolved]
  - Treatment noncompliance [Unknown]
  - Arthralgia [Unknown]

NARRATIVE: CASE EVENT DATE: 20160413
